FAERS Safety Report 15155709 (Version 1)
Quarter: 2018Q3

REPORT INFORMATION
  Report Type: Report from Study
  Country: KR (occurrence: KR)
  Receive Date: 20180717
  Receipt Date: 20180717
  Transmission Date: 20181010
  Serious: Yes (Death, Hospitalization)
  Sender: FDA-Public Use
  Company Number: KR-MYLANLABS-2018M1052130

PATIENT

DRUGS (4)
  1. MESNA. [Suspect]
     Active Substance: MESNA
     Indication: LUNG NEOPLASM MALIGNANT
     Dosage: ON DAYS 1 TO 4
     Route: 065
  2. DOXORUBICIN [Suspect]
     Active Substance: DOXORUBICIN
     Indication: LUNG NEOPLASM MALIGNANT
     Dosage: ON DAYS 1 TO 3
     Route: 065
  3. IFOSFAMIDE. [Suspect]
     Active Substance: IFOSFAMIDE
     Indication: LUNG NEOPLASM MALIGNANT
     Dosage: ON DAYS 1 TO 3
     Route: 065
  4. DACARBAZINE. [Suspect]
     Active Substance: DACARBAZINE
     Indication: LUNG NEOPLASM MALIGNANT
     Dosage: ON DAYS 1 TO 3
     Route: 065

REACTIONS (2)
  - Febrile neutropenia [Fatal]
  - Klebsiella bacteraemia [Fatal]
